FAERS Safety Report 9178940 (Version 1)
Quarter: 2013Q1

REPORT INFORMATION
  Report Type: Spontaneous
  Country: GB (occurrence: GB)
  Receive Date: 20130321
  Receipt Date: 20130321
  Transmission Date: 20140127
  Serious: Yes (Life-Threatening)
  Sender: FDA-Public Use
  Company Number: GB-TEVA-391919ISR

PATIENT
  Age: 37 Year
  Sex: Female

DRUGS (6)
  1. DOXAZOSIN [Suspect]
     Indication: BLOOD PRESSURE
     Route: 048
     Dates: start: 20130202, end: 20130203
  2. PERINDOPRIL [Concomitant]
     Indication: BLOOD PRESSURE
  3. INDAPAMIDE [Concomitant]
  4. LEVOTHYROXINE [Concomitant]
  5. LEVOTHYROXINE [Concomitant]
  6. CITALOPRAM [Concomitant]

REACTIONS (1)
  - Anaphylactic reaction [Recovered/Resolved]
